FAERS Safety Report 5040719-5 (Version None)
Quarter: 2006Q3

REPORT INFORMATION
  Report Type: 
  Country: None (occurrence: None)
  Receive Date: 20060703
  Receipt Date: 20060619
  Transmission Date: 20061208
  Serious: Yes (Other)
  Sender: FDA-Public Use
  Company Number: PHEH2006US08180

PATIENT
  Sex: Female

DRUGS (1)
  1. ENABLEX [Suspect]

REACTIONS (7)
  - DRY EYE [None]
  - DRY MOUTH [None]
  - DRY SKIN [None]
  - GASTROINTESTINAL PAIN [None]
  - HAIR TEXTURE ABNORMAL [None]
  - INTESTINAL OBSTRUCTION [None]
  - NAIL DISORDER [None]
